FAERS Safety Report 7387573-4 (Version None)
Quarter: 2011Q1

REPORT INFORMATION
  Report Type: 
  Country: None (occurrence: None)
  Receive Date: 20110331
  Receipt Date: 20101229
  Transmission Date: 20110831
  Serious: No
  Sender: FDA-Public Use
  Company Number: US-BAYER-2011-026531

PATIENT
  Sex: Male

DRUGS (1)
  1. ONE A DAY ENERGY [Suspect]
     Indication: VITAMIN SUPPLEMENTATION
     Route: 048

REACTIONS (1)
  - NAUSEA [None]
